FAERS Safety Report 9119894 (Version 2)
Quarter: 2014Q3

REPORT INFORMATION
  Report Type: Report from Study
  Country: MX (occurrence: MX)
  Receive Date: 20130226
  Receipt Date: 20140722
  Transmission Date: 20150326
  Serious: No
  Sender: FDA-Public Use
  Company Number: PHHY2013MX017897

PATIENT
  Age: 65 Year
  Sex: Female

DRUGS (4)
  1. CALCIUM +VIT D [Concomitant]
     Active Substance: CALCIUM\VITAMIN D
     Indication: OSTEOPOROSIS
     Dosage: UNK UKN, UNK
  2. DOLOCAM//MELOXICAM [Concomitant]
     Indication: PAIN
     Dosage: UNK UKN, UNK
  3. ACLASTA [Suspect]
     Active Substance: ZOLEDRONIC ACID
     Indication: OSTEOPOROSIS
     Dosage: 5 MG/ 100 ML, ANNUALLY
     Route: 042
     Dates: start: 201108
  4. METHOTREXATE [Concomitant]
     Active Substance: METHOTREXATE
     Dosage: UNK UKN, UNK

REACTIONS (4)
  - Gastric infection [Recovered/Resolved]
  - Epistaxis [Not Recovered/Not Resolved]
  - Respiratory tract infection [Recovered/Resolved]
  - Gastritis [Not Recovered/Not Resolved]

NARRATIVE: CASE EVENT DATE: 201204
